FAERS Safety Report 8596833-0 (Version None)
Quarter: 2012Q3

REPORT INFORMATION
  Report Type: 
  Country: None (occurrence: None)
  Receive Date: 20120815
  Receipt Date: 20120807
  Transmission Date: 20120928
  Serious: Yes (Hospitalization)
  Sender: FDA-Public Use
  Company Number: US-PFIZER INC-2006147388

PATIENT
  Age: 59 Year
  Sex: Female
  Weight: 58.2 kg

DRUGS (5)
  1. PREGABALIN [Suspect]
     Indication: ABDOMINAL PAIN
     Dosage: 75 MG, 2X/DAY
     Route: 048
     Dates: start: 20061108, end: 20061128
  2. PREMARIN [Concomitant]
     Dosage: 1.25 MG, 1X/DAY
  3. SYNTHROID [Concomitant]
     Dosage: 100 UG, 1X/DAY
  4. EFFEXOR [Concomitant]
     Dosage: 7.5 MG, 1X/DAY
  5. ULTRAM [Concomitant]
     Dosage: 50 MG, AS NEEDED

REACTIONS (2)
  - SUICIDE ATTEMPT [None]
  - INTENTIONAL OVERDOSE [None]
